FAERS Safety Report 25981624 (Version 4)
Quarter: 2025Q4

REPORT INFORMATION
  Report Type: Spontaneous
  Country: GB (occurrence: GB)
  Receive Date: 20251031
  Receipt Date: 20251112
  Transmission Date: 20260117
  Serious: Yes (Other)
  Sender: TEVA
  Company Number: GB-MHRA-EMIS-11697-e9cd8ff2-f45f-43a4-8874-af39de03bec7

PATIENT
  Age: 83 Year
  Sex: Female
  Weight: 93 kg

DRUGS (6)
  1. NAPROXEN [Suspect]
     Active Substance: NAPROXEN
     Indication: Pain
     Dosage: WITH FOOD, STOP IF INDIGESTION. NOT WITH IBUPROFEN. MUST TAKE OMEPRAZOLE TO PROTECT STOMACH. THIS...
     Route: 065
     Dates: start: 20250516, end: 20250616
  2. BETAMETHASONE [Concomitant]
     Active Substance: BETAMETHASONE
     Indication: Mouth ulceration
     Dosage: DISSOLVE 2 X TABLETS IN 10 - 15ML WATER, RINSE AROUND MOUTH FOR 2-3 MINS THEN SPIT OUT TWICE DAIL...
     Route: 048
     Dates: start: 20250616
  3. OMEPRAZOLE [Suspect]
     Active Substance: OMEPRAZOLE
     Indication: Adverse drug reaction
     Dosage: TAKING MINIMUM TO CONTROL SYMPOTMS (TRY EVERY OTHER DAY)
     Route: 065
     Dates: start: 20250410, end: 20250616
  4. MOMETASONE [Concomitant]
     Active Substance: MOMETASONE
     Indication: Skin irritation
     Dosage: USE ONCE DAILY ON SORE IRRITATED SKIN. THIS IS STEROID OINTMENT. FOR UP TO 2 WEEKS
     Dates: start: 20250616
  5. Spikevax JN.1 [Concomitant]
     Indication: COVID-19 immunisation
     Dosage: COVID-19 MRNA VACCINE, MULTIDOSE VIALS (MODERNA BIOTECH DISTRIBUTOR UK LTD)
     Route: 030
     Dates: start: 20250426
  6. Zeroderm [Concomitant]
     Indication: Product used for unknown indication
     Dosage: USE AS SOAP SUBSTITITE FOR WASHING IN BATH OR SHOWER (CAN JUST DISSOLVE SOME IN HOT BATH WATER / ...
     Dates: start: 20250616

REACTIONS (4)
  - Oral mucosal blistering [Unknown]
  - Mouth ulceration [Unknown]
  - Genital blister [Unknown]
  - Genital ulceration [Unknown]

NARRATIVE: CASE EVENT DATE: 20250602
